FAERS Safety Report 25851126 (Version 1)
Quarter: 2025Q3

REPORT INFORMATION
  Report Type: Report from Study
  Country: CN (occurrence: CN)
  Receive Date: 20250926
  Receipt Date: 20250926
  Transmission Date: 20251021
  Serious: Yes (Other)
  Sender: ROCHE
  Company Number: CN-ROCHE-10000362004

PATIENT
  Age: 63 Year
  Sex: Male
  Weight: 70 kg

DRUGS (16)
  1. POLATUZUMAB VEDOTIN [Suspect]
     Active Substance: POLATUZUMAB VEDOTIN
     Indication: Diffuse large B-cell lymphoma
     Dosage: MOST RECENT DOSE: 08-MAY-2024
     Route: 042
     Dates: start: 20240417, end: 20240417
  2. RITUXIMAB [Suspect]
     Active Substance: RITUXIMAB
     Indication: Diffuse large B-cell lymphoma
     Dosage: MOST RECENT DOSE: 08-MAY-2024
     Route: 042
     Dates: start: 20240417, end: 20240417
  3. GEMCITABINE [Suspect]
     Active Substance: GEMCITABINE
     Indication: Diffuse large B-cell lymphoma
     Dosage: MOST RECENT DOSE: 09-MAY-2024
     Route: 042
     Dates: start: 20240418, end: 20240419
  4. CISPLATIN [Suspect]
     Active Substance: CISPLATIN
     Indication: Diffuse large B-cell lymphoma
     Route: 042
     Dates: start: 20240418, end: 20240420
  5. CISPLATIN [Suspect]
     Active Substance: CISPLATIN
     Dosage: MOST RECENT DOSE: 09-MAY-2024
     Route: 042
     Dates: start: 20240418, end: 20240419
  6. DEXAMETHASONE [Suspect]
     Active Substance: DEXAMETHASONE
     Indication: Diffuse large B-cell lymphoma
     Dosage: MOST RECENT DOSE: 08-MAY-2024
     Route: 042
     Dates: start: 20240417, end: 20240421
  7. ENTECAVIR [Concomitant]
     Active Substance: ENTECAVIR
  8. SODIUM BICARBONATE [Concomitant]
     Active Substance: SODIUM BICARBONATE
  9. OMEPRAZOLE [Concomitant]
     Active Substance: OMEPRAZOLE
  10. POTASSIUM CHLORIDE [Concomitant]
     Active Substance: POTASSIUM CHLORIDE
  11. TRIAMCINOLONE ACETONIDE ACETATE AND ECONAZOLE NITRATE [Concomitant]
  12. GLYCYRRHIZA GLABRA\HERBALS [Concomitant]
     Active Substance: GLYCYRRHIZA GLABRA\HERBALS
  13. PLATYCODON GRANDIFLORUS WHOLE [Concomitant]
     Active Substance: PLATYCODON GRANDIFLORUS WHOLE
  14. DEXTROSE\SODIUM CHLORIDE [Concomitant]
     Active Substance: DEXTROSE\SODIUM CHLORIDE
  15. SILVER [Concomitant]
     Active Substance: SILVER
  16. CALCIPOTRIENE [Concomitant]
     Active Substance: CALCIPOTRIENE

REACTIONS (1)
  - Neutropenia [Recovered/Resolved]

NARRATIVE: CASE EVENT DATE: 20240527
